FAERS Safety Report 5832731-0 (Version None)
Quarter: 2008Q3

REPORT INFORMATION
  Report Type: 
  Country: None (occurrence: None)
  Receive Date: 20080804
  Receipt Date: 20080725
  Transmission Date: 20090109
  Serious: Yes (Death, Other)
  Sender: FDA-Public Use
  Company Number: BR-PFIZER INC-2008062809

PATIENT
  Sex: Male

DRUGS (1)
  1. CELEBRA [Suspect]
     Indication: PAIN
     Route: 048

REACTIONS (2)
  - DEATH [None]
  - HAEMATEMESIS [None]
